FAERS Safety Report 8018826-4 (Version None)
Quarter: 2012Q1

REPORT INFORMATION
  Report Type: 
  Country: None (occurrence: None)
  Receive Date: 20120103
  Receipt Date: 20111219
  Transmission Date: 20120608
  Serious: Yes (Death, Other)
  Sender: FDA-Public Use
  Company Number: US-PFIZER INC-2011313906

PATIENT
  Age: 38 Year
  Sex: Female

DRUGS (3)
  1. OXYCODONE HCL [Suspect]
  2. LORAZEPAM [Suspect]
  3. TEMAZEPAM [Suspect]

REACTIONS (3)
  - CARDIAC ARREST [None]
  - RESPIRATORY ARREST [None]
  - COMPLETED SUICIDE [None]
